FAERS Safety Report 9669219 (Version 2)
Quarter: 2013Q4

REPORT INFORMATION
  Report Type: Spontaneous
  Country: US (occurrence: US)
  Receive Date: 20131105
  Receipt Date: 20131202
  Transmission Date: 20140711
  Serious: No
  Sender: FDA-Public Use
  Company Number: US-009507513-1311USA000253

PATIENT
  Age: 62 Year
  Sex: Female
  Weight: 87.53 kg

DRUGS (2)
  1. OXYTROL FOR WOMEN [Suspect]
     Indication: HYPERTONIC BLADDER
     Dosage: UNK, UNKNOWN
     Route: 062
     Dates: start: 20131006, end: 20131012
  2. SYNTHROID [Concomitant]
     Indication: HYPOTHYROIDISM
     Dosage: UNK, UNKNOWN

REACTIONS (5)
  - Rash [Recovered/Resolved]
  - Drug ineffective [Unknown]
  - Product quality issue [Unknown]
  - Application site erythema [Recovered/Resolved]
  - Application site pruritus [Recovered/Resolved]
